FAERS Safety Report 7879771-8 (Version None)
Quarter: 2011Q4

REPORT INFORMATION
  Report Type: 
  Country: None (occurrence: None)
  Receive Date: 20111101
  Receipt Date: 20111020
  Transmission Date: 20120403
  Serious: Yes (Other)
  Sender: FDA-Public Use
  Company Number: DE-ELI_LILLY_AND_COMPANY-DE201110005479

PATIENT
  Age: 38 Year
  Sex: Female

DRUGS (1)
  1. HUMALOG [Suspect]
     Indication: DIABETES MELLITUS
     Dosage: UNK
     Route: 058
     Dates: start: 20090101

REACTIONS (4)
  - VISUAL ACUITY REDUCED [None]
  - EYE HAEMORRHAGE [None]
  - DIABETIC RETINOPATHY [None]
  - RETINOPATHY [None]
